FAERS Safety Report 5612992-3 (Version None)
Quarter: 2008Q1

REPORT INFORMATION
  Report Type: 
  Country: None (occurrence: None)
  Receive Date: 20080204
  Receipt Date: 20080128
  Transmission Date: 20080703
  Serious: Yes (Hospitalization)
  Sender: FDA-Public Use
  Company Number: ZA-RANBAXY-2008RR-12767

PATIENT

DRUGS (3)
  1. FLUOXETINE 20MG CAPSULES [Suspect]
     Dosage: 20 MG, QD
     Route: 048
  2. HALOPERIDOL 2MG/ML PICATURI ORALE, SOLUTIE [Suspect]
     Dosage: 5 MG, QD
     Route: 048
  3. RISPERIDONE [Suspect]
     Dosage: 2 MG, QD
     Route: 048

REACTIONS (1)
  - TOXIC EPIDERMAL NECROLYSIS [None]
